FAERS Safety Report 6657007-3 (Version None)
Quarter: 2010Q1

REPORT INFORMATION
  Report Type: 
  Country: None (occurrence: None)
  Receive Date: 20100329
  Receipt Date: 20100329
  Transmission Date: 20100710
  Serious: No
  Sender: FDA-Public Use
  Company Number: None

PATIENT
  Age: 20 Year
  Sex: Male

DRUGS (5)
  1. LAMOTRIGINE [Suspect]
     Dates: start: 20090211, end: 20090223
  2. ZIPRASIDONE HCL [Suspect]
     Dates: start: 20090211, end: 20090224
  3. ABILIFY [Concomitant]
  4. DEPAKOTE [Concomitant]
  5. PAXIL [Concomitant]

REACTIONS (9)
  - DRUG HYPERSENSITIVITY [None]
  - DRUG TOXICITY [None]
  - HEADACHE [None]
  - HEPATITIS [None]
  - LIVER INJURY [None]
  - NAUSEA [None]
  - PHARYNGITIS [None]
  - RASH [None]
  - VOMITING [None]
